FAERS Safety Report 6241165-9 (Version None)
Quarter: 2009Q2

REPORT INFORMATION
  Report Type: 
  Country: None (occurrence: None)
  Receive Date: 20090622
  Receipt Date: 20090622
  Transmission Date: 20091009
  Serious: Yes (Other)
  Sender: FDA-Public Use
  Company Number: None

PATIENT
  Age: 51 Year
  Sex: Female
  Weight: 70.3075 kg

DRUGS (2)
  1. ZICAM NASAL GEL SEVERE COLD ZICAM [Suspect]
     Indication: SINUS CONGESTION
     Dosage: 2 PUMPS EVERY 4 HRS AS NEE NASAL
     Route: 045
     Dates: start: 20010101, end: 20090616
  2. ZICAM NASAL GEL COLD REMEDY ZICAM [Suspect]
     Indication: NASOPHARYNGITIS
     Dosage: 2 PUMPS EVERY 4 HRSAS NEED NASAL
     Route: 045
     Dates: start: 20010101, end: 20090617

REACTIONS (2)
  - AGEUSIA [None]
  - ANOSMIA [None]
